FAERS Safety Report 6800406-7 (Version None)
Quarter: 2010Q2

REPORT INFORMATION
  Report Type: 
  Country: None (occurrence: None)
  Receive Date: 20100629
  Receipt Date: 20100622
  Transmission Date: 20101027
  Serious: Yes (Life-Threatening, Hospitalization)
  Sender: FDA-Public Use
  Company Number: US-ROCHE-711460

PATIENT
  Sex: Male
  Weight: 83.5 kg

DRUGS (7)
  1. TOCILIZUMAB [Suspect]
     Indication: RHEUMATOID ARTHRITIS
     Dosage: DATE OF LAST DOSE PRIOR TO SAE: 11 MAY 2010, TEMPORARILY INTERRUPTED, DOSE FORM : VIAL
     Route: 042
     Dates: start: 20091124
  2. METHOTREXATE [Concomitant]
     Route: 048
     Dates: start: 20100112
  3. ANTIHYPERTENSIVE NOS [Concomitant]
  4. PERCOCET [Concomitant]
  5. FINASTERIDE [Concomitant]
     Dosage: FREQUENCY: QD
     Dates: start: 20070129
  6. FOLIC ACID [Concomitant]
     Dosage: FREQUENCY: QD
     Dates: start: 20070129
  7. NITROGLYCERIN [Concomitant]
     Dosage: FREQUENCY: PRN
     Dates: start: 20100512

REACTIONS (2)
  - CELLULITIS [None]
  - CORONARY ARTERY BYPASS [None]
